FAERS Safety Report 7403460-7 (Version None)
Quarter: 2011Q2

REPORT INFORMATION
  Report Type: 
  Country: None (occurrence: None)
  Receive Date: 20110408
  Receipt Date: 20110328
  Transmission Date: 20111010
  Serious: Yes (Hospitalization)
  Sender: FDA-Public Use
  Company Number: B0708918A

PATIENT
  Sex: Male

DRUGS (8)
  1. ZOPHREN [Suspect]
     Indication: PREMEDICATION
     Dosage: 8MG PER DAY
     Route: 042
     Dates: start: 20090817, end: 20090820
  2. DOXORUBICINE [Suspect]
     Indication: CHEMOTHERAPY
     Dosage: 59MG PER DAY
     Route: 042
     Dates: start: 20090817, end: 20090818
  3. MESNA [Suspect]
     Indication: CHEMOTHERAPY
     Dosage: 4G PER DAY
     Route: 042
     Dates: start: 20090817, end: 20090820
  4. EMEND [Suspect]
     Indication: CHEMOTHERAPY
     Route: 048
     Dates: start: 20090817, end: 20090818
  5. PRIMPERAN TAB [Suspect]
     Indication: PREMEDICATION
     Dosage: 40MG PER DAY
     Route: 042
     Dates: start: 20090817, end: 20090822
  6. HOLOXAN [Suspect]
     Indication: CHEMOTHERAPY
     Dosage: 3.9G PER DAY
     Route: 042
     Dates: start: 20090817, end: 20090819
  7. SOLU-MEDROL [Suspect]
     Indication: PREMEDICATION
     Dosage: 80MG PER DAY
     Route: 042
     Dates: start: 20090817, end: 20090820
  8. INNOHEP [Concomitant]

REACTIONS (3)
  - DISORIENTATION [None]
  - CONFUSIONAL STATE [None]
  - ENCEPHALOPATHY [None]
